FAERS Safety Report 17983994 (Version 1)
Quarter: 2020Q3

REPORT INFORMATION
  Report Type: Spontaneous
  Country: US (occurrence: US)
  Receive Date: 20200706
  Receipt Date: 20200706
  Transmission Date: 20201103
  Serious: Yes (Other)
  Sender: FDA-Public Use
  Company Number: US-ALIMERA SCIENCES LIMITED-US-A16013-20-004216

PATIENT

DRUGS (1)
  1. FLUOCINOLONE ACETONIDE. [Suspect]
     Active Substance: FLUOCINOLONE ACETONIDE
     Indication: DIABETIC RETINAL OEDEMA
     Dosage: RIGHT EYE
     Route: 031

REACTIONS (6)
  - Condition aggravated [Recovering/Resolving]
  - Device dislocation [Recovered/Resolved]
  - Vitrectomy [Recovered/Resolved]
  - Diabetic retinal oedema [Recovering/Resolving]
  - Scleral operation [Recovered/Resolved]
  - Visual impairment [Unknown]
